FAERS Safety Report 23329252 (Version 1)
Quarter: 2023Q4

REPORT INFORMATION
  Report Type: Other
  Country: AU (occurrence: AU)
  Receive Date: 20231222
  Receipt Date: 20231222
  Transmission Date: 20240110
  Serious: Yes (Other)
  Sender: FDA-Public Use
  Company Number: AU-ALEMBIC PHARMACUETICALS LIMITED-2023SCAL001237

PATIENT

DRUGS (1)
  1. DULOXETINE HYDROCHLORIDE [Suspect]
     Active Substance: DULOXETINE HYDROCHLORIDE
     Indication: Product used for unknown indication

REACTIONS (6)
  - Hallucination, auditory [Unknown]
  - Dizziness [Unknown]
  - Blood pressure increased [Unknown]
  - Headache [Unknown]
  - Lethargy [Unknown]
  - Vision blurred [Unknown]
